FAERS Safety Report 6250201-5 (Version None)
Quarter: 2009Q2

REPORT INFORMATION
  Report Type: 
  Country: None (occurrence: None)
  Receive Date: 20090626
  Receipt Date: 20090612
  Transmission Date: 20091009
  Serious: Yes (Hospitalization)
  Sender: FDA-Public Use
  Company Number: 8044914

PATIENT
  Age: 68 Year
  Sex: Female
  Weight: 81 kg

DRUGS (10)
  1. CERTOLIZUMAB PEGOL [Suspect]
     Indication: RHEUMATOID ARTHRITIS
     Dosage: 400 MG /M SC
     Route: 058
     Dates: start: 20030910, end: 20090612
  2. PREDNISOLONE [Concomitant]
  3. METHOTREXATE [Concomitant]
  4. FOLSAN [Concomitant]
  5. TIOTROPIUM BROMIDE [Concomitant]
  6. L-THYROXIN [Concomitant]
  7. METOPROLOL TARTRATE [Concomitant]
  8. DELIX [Concomitant]
  9. METFORMIN HCL [Concomitant]
  10. LEVEMIR [Concomitant]

REACTIONS (9)
  - ASTHMA [None]
  - CONDITION AGGRAVATED [None]
  - DIABETES MELLITUS [None]
  - EXOSTOSIS [None]
  - HYPERTENSION [None]
  - HYPERTHYROIDISM [None]
  - POST PROCEDURAL COMPLICATION [None]
  - TOXIC NODULAR GOITRE [None]
  - WOUND INFECTION [None]
